FAERS Safety Report 20082216 (Version 1)
Quarter: 2021Q4

REPORT INFORMATION
  Report Type: Spontaneous
  Country: US (occurrence: None)
  Receive Date: 20211117
  Receipt Date: 20211117
  Transmission Date: 20220304
  Serious: No
  Sender: FDA-Public Use
  Company Number: None

PATIENT
  Age: 32 Year
  Sex: Female

DRUGS (1)
  1. ZAFEMY [Suspect]
     Active Substance: ETHINYL ESTRADIOL\NORELGESTROMIN
     Indication: Contraception
     Dosage: OTHER QUANTITY : 1 PATCH(ES);?OTHER FREQUENCY : WEEKLY;?
     Route: 061
     Dates: start: 20211110, end: 20211117

REACTIONS (4)
  - Nausea [None]
  - Headache [None]
  - Product adhesion issue [None]
  - Product substitution issue [None]

NARRATIVE: CASE EVENT DATE: 20211117
